FAERS Safety Report 23139235 (Version 3)
Quarter: 2024Q1

REPORT INFORMATION
  Report Type: Spontaneous
  Country: US (occurrence: US)
  Receive Date: 20231102
  Receipt Date: 20240131
  Transmission Date: 20240410
  Serious: No
  Sender: FDA-Public Use
  Company Number: US-KOWA PHARMACEUTICALS-2023KOW00044

PATIENT
  Age: 54 Year
  Sex: Male
  Weight: 86.168 kg

DRUGS (1)
  1. SEGLENTIS [Suspect]
     Active Substance: CELECOXIB\TRAMADOL HYDROCHLORIDE
     Indication: Pain
     Dosage: 2 TABLETS, 2X/DAY (EVERY 12 HOURS)
     Route: 048
     Dates: start: 20231002, end: 20231003

REACTIONS (1)
  - Nausea [Recovered/Resolved]

NARRATIVE: CASE EVENT DATE: 20231002
